FAERS Safety Report 6175440-3 (Version None)
Quarter: 2009Q2

REPORT INFORMATION
  Report Type: 
  Country: None (occurrence: None)
  Receive Date: 20090429
  Receipt Date: 20090416
  Transmission Date: 20091009
  Serious: Yes (Other)
  Sender: FDA-Public Use
  Company Number: 2009AL002241

PATIENT
  Age: 70 Year
  Sex: Male

DRUGS (1)
  1. LORAZEPAM [Suspect]
     Indication: AGITATION
     Dosage: 0.5 MG; X1

REACTIONS (4)
  - ACUTE RESPIRATORY FAILURE [None]
  - ANXIETY [None]
  - DIAPHRAGMATIC PARALYSIS [None]
  - GENERAL PHYSICAL HEALTH DETERIORATION [None]
